FAERS Safety Report 5375814-4 (Version None)
Quarter: 2007Q3

REPORT INFORMATION
  Report Type: 
  Country: None (occurrence: None)
  Receive Date: 20070702
  Receipt Date: 20070620
  Transmission Date: 20080115
  Serious: Yes (Hospitalization)
  Sender: FDA-Public Use
  Company Number: FRWYE887020JUN07

PATIENT
  Age: 68 Year
  Sex: Female
  Weight: 61 kg

DRUGS (15)
  1. NOVATREX [Interacting]
     Indication: RHEUMATOID ARTHRITIS
     Dosage: 7.5 MG MONTHLY
     Route: 048
     Dates: end: 20070509
  2. ROCEPHIN [Suspect]
     Indication: LUNG INFECTION
     Route: 030
     Dates: start: 20070505, end: 20070509
  3. BREXIN [Interacting]
     Route: 048
     Dates: start: 20070403, end: 20070509
  4. LEVOFLOXACIN [Suspect]
     Indication: LUNG INFECTION
     Route: 048
     Dates: start: 20070505, end: 20070509
  5. KETEK [Suspect]
     Indication: LUNG INFECTION
     Route: 048
     Dates: start: 20070419, end: 20070424
  6. TAREG [Concomitant]
     Route: 048
     Dates: end: 20070509
  7. SYMBICORT [Concomitant]
     Dosage: UNKNOWN
     Route: 055
     Dates: end: 20070509
  8. BRONCHODUAL [Concomitant]
     Dosage: UNKNOWN
     Route: 055
     Dates: end: 20070509
  9. ALPRAZOLAM [Concomitant]
     Dosage: UNKNOWN
     Route: 048
     Dates: end: 20070509
  10. EFFEXOR [Suspect]
     Dosage: UNKNOWN
     Route: 048
     Dates: end: 20070509
  11. DI-ANTALVIC [Concomitant]
     Dosage: UNKNOWN
     Route: 048
     Dates: end: 20070509
  12. NEURONTIN [Concomitant]
     Dosage: UNKNOWN
     Route: 048
  13. OGAST [Concomitant]
     Route: 048
     Dates: end: 20070509
  14. PULMICORT [Concomitant]
     Dosage: UNKNOWN
     Route: 055
     Dates: end: 20070509
  15. AUGMENTIN '125' [Suspect]
     Indication: LUNG INFECTION
     Dosage: UNKNOWN
     Route: 048
     Dates: start: 20070430, end: 20070506

REACTIONS (7)
  - ASTHENIA [None]
  - CONDITION AGGRAVATED [None]
  - DISLOCATION OF JOINT PROSTHESIS [None]
  - DRUG INTERACTION [None]
  - LUNG INFECTION [None]
  - PANCYTOPENIA [None]
  - RENAL FAILURE CHRONIC [None]
